FAERS Safety Report 19856857 (Version 3)
Quarter: 2022Q1

REPORT INFORMATION
  Report Type: Spontaneous
  Country: US (occurrence: US)
  Receive Date: 20210920
  Receipt Date: 20220217
  Transmission Date: 20220424
  Serious: Yes (Hospitalization, Other)
  Sender: FDA-Public Use
  Company Number: US-BOEHRINGERINGELHEIM-2021-BI-127841

PATIENT
  Age: 71 Year
  Sex: Male

DRUGS (1)
  1. SPIRIVA [Suspect]
     Active Substance: TIOTROPIUM BROMIDE MONOHYDRATE
     Indication: Product used for unknown indication
     Dosage: 2.5 MCG
     Route: 065
     Dates: start: 2011, end: 2021

REACTIONS (3)
  - Ewing^s sarcoma metastatic [Unknown]
  - Metastases to lung [Unknown]
  - Chest wall tumour [Unknown]

NARRATIVE: CASE EVENT DATE: 20210806
